FAERS Safety Report 15270054 (Version 2)
Quarter: 2018Q3

REPORT INFORMATION
  Report Type: Spontaneous
  Country: US (occurrence: US)
  Receive Date: 20180813
  Receipt Date: 20180911
  Transmission Date: 20181010
  Serious: No
  Sender: FDA-Public Use
  Company Number: US-PFIZER INC-2018321540

PATIENT
  Age: 82 Year
  Sex: Female

DRUGS (1)
  1. INDERAL [Suspect]
     Active Substance: PROPRANOLOL HYDROCHLORIDE
     Dosage: UNK

REACTIONS (4)
  - Visual impairment [Recovered/Resolved]
  - Balance disorder [Recovered/Resolved]
  - Drug hypersensitivity [Recovered/Resolved]
  - Aphasia [Recovered/Resolved]
